FAERS Safety Report 10061408 (Version 3)
Quarter: 2014Q2

REPORT INFORMATION
  Report Type: Spontaneous
  Country: JP (occurrence: JP)
  Receive Date: 20140407
  Receipt Date: 20140505
  Transmission Date: 20141212
  Serious: Yes (Hospitalization)
  Sender: FDA-Public Use
  Company Number: JP-JNJFOC-20140318891

PATIENT
  Age: 27 Year
  Sex: Female
  Weight: 65 kg

DRUGS (9)
  1. INVEGA [Suspect]
     Indication: SCHIZOPHRENIA
     Route: 048
     Dates: start: 20120420, end: 20120426
  2. INVEGA [Suspect]
     Indication: SCHIZOPHRENIA
     Route: 048
     Dates: start: 20130530, end: 20130612
  3. INVEGA [Suspect]
     Indication: SCHIZOPHRENIA
     Route: 048
     Dates: start: 20130905, end: 20130924
  4. INVEGA [Suspect]
     Indication: SCHIZOPHRENIA
     Route: 048
     Dates: start: 20131113, end: 20131115
  5. INVEGA [Suspect]
     Indication: SCHIZOPHRENIA
     Route: 048
     Dates: start: 20130925, end: 20131112
  6. RISPERDAL [Suspect]
     Indication: SCHIZOPHRENIA
     Route: 048
  7. AMOBAN [Concomitant]
     Indication: SCHIZOPHRENIA
     Route: 048
  8. ABILIFY [Concomitant]
     Route: 048
     Dates: start: 20131113, end: 20131115
  9. ABILIFY [Concomitant]
     Route: 048
     Dates: start: 20131116

REACTIONS (3)
  - Schizophrenia [Unknown]
  - Treatment noncompliance [Unknown]
  - Hyperprolactinaemia [Recovered/Resolved]
